FAERS Safety Report 15526199 (Version 3)
Quarter: 2019Q1

REPORT INFORMATION
  Report Type: Spontaneous
  Country: DE (occurrence: DE)
  Receive Date: 20181019
  Receipt Date: 20190128
  Transmission Date: 20190417
  Serious: Yes (Death, Life-Threatening, Other)
  Sender: FDA-Public Use
  Company Number: PHHY2018DE131789

PATIENT
  Age: 23 Year
  Sex: Male

DRUGS (4)
  1. CABOMETYX [Suspect]
     Active Substance: CABOZANTINIB S-MALATE
     Indication: METASTASES TO BONE
     Dosage: UNK
     Route: 065
  2. CABOMETYX [Suspect]
     Active Substance: CABOZANTINIB S-MALATE
     Indication: MEDULLARY THYROID CANCER
  3. DOTATATE [Concomitant]
     Active Substance: OXODOTREOTIDE
     Indication: PRODUCT USED FOR UNKNOWN INDICATION
     Dosage: 4.4 GBQ Y90 DOTATATE 10 MONTHS AFTER SURGERY
     Route: 065
  4. ZOLEDRONIC ACID [Suspect]
     Active Substance: ZOLEDRONIC ACID
     Indication: METASTASES TO BONE
     Dosage: 4 MG, TID
     Route: 042

REACTIONS (14)
  - Renal failure [Fatal]
  - Medication error [Fatal]
  - Thrombotic microangiopathy [Fatal]
  - Hyperkalaemia [Fatal]
  - Vomiting [Fatal]
  - Glomerulonephritis [Fatal]
  - Microangiopathic haemolytic anaemia [Fatal]
  - Hypoproteinaemia [Fatal]
  - End stage renal disease [Fatal]
  - Malignant neoplasm progression [Fatal]
  - Thrombocytopenia [Fatal]
  - Blood pressure decreased [Fatal]
  - Proteinuria [Fatal]
  - Blood lactate dehydrogenase increased [Fatal]
